FAERS Safety Report 20730050 (Version 1)
Quarter: 2022Q2

REPORT INFORMATION
  Report Type: Spontaneous
  Country: NL (occurrence: NL)
  Receive Date: 20220420
  Receipt Date: 20220420
  Transmission Date: 20220721
  Serious: Yes (Death, Hospitalization)
  Sender: FDA-Public Use
  Company Number: NL-MYLANLABS-2022M1028610

PATIENT
  Age: 77 Year
  Sex: Male

DRUGS (3)
  1. ACETAMINOPHEN [Interacting]
     Active Substance: ACETAMINOPHEN
     Indication: Device related infection
     Dosage: UNK
     Route: 042
  2. FLUCLOXACILLIN [Interacting]
     Active Substance: FLUCLOXACILLIN
     Indication: Device related infection
     Dosage: UNK
     Route: 042
  3. RIFAMPIN [Interacting]
     Active Substance: RIFAMPIN
     Indication: Device related infection
     Dosage: UNK
     Route: 042

REACTIONS (3)
  - Drug interaction [Fatal]
  - Metabolic acidosis [Fatal]
  - Respiratory distress [Fatal]
